FAERS Safety Report 13700864 (Version 1)
Quarter: 2017Q2

REPORT INFORMATION
  Report Type: Spontaneous
  Country: US (occurrence: US)
  Receive Date: 20170628
  Receipt Date: 20170628
  Transmission Date: 20170830
  Serious: Yes (Disabling)
  Sender: FDA-Public Use
  Company Number: None

PATIENT
  Age: 55 Year
  Sex: Female

DRUGS (14)
  1. GABAPENTN [Concomitant]
  2. MULTIVITAMIN [Concomitant]
     Active Substance: VITAMINS
  3. BUSBAR [Concomitant]
  4. HARITAKI [Concomitant]
  5. CLONAZEPAM. [Suspect]
     Active Substance: CLONAZEPAM
     Indication: ANXIETY
     Dosage: ?          OTHER STRENGTH:MG;QUANTITY:1 TABLET(S);?3 TIMNES A DAY ORAL
     Route: 048
  6. LEVOTHYROXINE. [Concomitant]
     Active Substance: LEVOTHYROXINE
  7. HYDROXYZINE HCL [Concomitant]
     Active Substance: HYDROXYZINE HYDROCHLORIDE
  8. ASPIRIN. [Concomitant]
     Active Substance: ASPIRIN
  9. TURMERIC [Concomitant]
     Active Substance: HERBALS\TURMERIC
  10. CLONAZEPAM. [Suspect]
     Active Substance: CLONAZEPAM
     Indication: PANIC ATTACK
     Dosage: ?          OTHER STRENGTH:MG;QUANTITY:1 TABLET(S);?3 TIMNES A DAY ORAL
     Route: 048
  11. PRILOSEC [Concomitant]
     Active Substance: OMEPRAZOLE MAGNESIUM
  12. LOVASTATIN. [Concomitant]
     Active Substance: LOVASTATIN
  13. FLECAINIDE [Concomitant]
     Active Substance: FLECAINIDE
  14. PRAZOSIN. [Concomitant]
     Active Substance: PRAZOSIN

REACTIONS (8)
  - Hypervigilance [None]
  - Decreased appetite [None]
  - Anxiety [None]
  - Dizziness [None]
  - Suicidal ideation [None]
  - Hypertension [None]
  - Insomnia [None]
  - Mood altered [None]

NARRATIVE: CASE EVENT DATE: 20160601
